FAERS Safety Report 7060618-7 (Version None)
Quarter: 2010Q4

REPORT INFORMATION
  Report Type: 
  Country: None (occurrence: None)
  Receive Date: 20101025
  Receipt Date: 20101014
  Transmission Date: 20110411
  Serious: Yes (Hospitalization, Other)
  Sender: FDA-Public Use
  Company Number: KR-ELI_LILLY_AND_COMPANY-KR201010003420

PATIENT
  Age: 74 Year
  Sex: Male
  Weight: 79 kg

DRUGS (4)
  1. HUMALOG MIX 75/25 [Suspect]
     Indication: TYPE 2 DIABETES MELLITUS
     Dosage: 24U MORNING, 12U EVENING
     Route: 058
     Dates: start: 20100712
  2. HUMALOG MIX 75/25 [Suspect]
     Dosage: 24 U, EACH MORNING
     Route: 058
  3. HUMALOG MIX 75/25 [Suspect]
     Dosage: 12 U, EACH EVENING
     Route: 058
  4. HUMALOG MIX 75/25 [Suspect]
     Dosage: 22 U, OTHER
     Dates: start: 20101022

REACTIONS (2)
  - BLOOD GLUCOSE INCREASED [None]
  - HYPOGLYCAEMIC UNCONSCIOUSNESS [None]
